FAERS Safety Report 19238453 (Version 1)
Quarter: 2021Q2

REPORT INFORMATION
  Report Type: Spontaneous
  Country: US (occurrence: US)
  Receive Date: 20210510
  Receipt Date: 20210510
  Transmission Date: 20210717
  Serious: Yes (Other)
  Sender: FDA-Public Use
  Company Number: US-PFIZER INC-2021489454

PATIENT

DRUGS (1)
  1. LIPITOR [Suspect]
     Active Substance: ATORVASTATIN CALCIUM
     Dosage: UNK

REACTIONS (6)
  - Dyspnoea [Unknown]
  - Interstitial lung disease [Unknown]
  - Rales [Unknown]
  - Wheezing [Unknown]
  - Lung disorder [Unknown]
  - Dysphonia [Unknown]
